FAERS Safety Report 6633263-2 (Version None)
Quarter: 2010Q1

REPORT INFORMATION
  Report Type: 
  Country: None (occurrence: None)
  Receive Date: 20100312
  Receipt Date: 20100301
  Transmission Date: 20100710
  Serious: Yes (Other)
  Sender: FDA-Public Use
  Company Number: JP-PFIZER INC-2010028834

PATIENT
  Age: 63 Year
  Sex: Female

DRUGS (1)
  1. SOLANAX [Suspect]
     Dosage: 0.4 MG/DAY
     Route: 048

REACTIONS (3)
  - DYSAESTHESIA [None]
  - LIMB DISCOMFORT [None]
  - PARAESTHESIA [None]
